FAERS Safety Report 4831182-5 (Version None)
Quarter: 2005Q4

REPORT INFORMATION
  Report Type: 
  Country: None (occurrence: None)
  Receive Date: 20051116
  Receipt Date: 20051024
  Transmission Date: 20060501
  Serious: Yes (Other)
  Sender: FDA-Public Use
  Company Number: MED000092

PATIENT

DRUGS (1)
  1. LACTATED RINGER'S IN PLASTIC CONTAINER [Suspect]
     Dosage: IV
     Route: 042

REACTIONS (3)
  - PRURITUS [None]
  - SWELLING FACE [None]
  - URTICARIA [None]
